FAERS Safety Report 5946156-0 (Version None)
Quarter: 2008Q4

REPORT INFORMATION
  Report Type: 
  Country: None (occurrence: None)
  Receive Date: 20081110
  Receipt Date: 20081103
  Transmission Date: 20090506
  Serious: Yes (Disabling, Other)
  Sender: FDA-Public Use
  Company Number: GB-AMGEN-US317647

PATIENT
  Age: 70 Year
  Sex: Male
  Weight: 80.2 kg

DRUGS (2)
  1. ENBREL [Suspect]
     Indication: PSORIATIC ARTHROPATHY
     Dosage: 50MG, FREQUENCY UNKNOWN
     Route: 058
     Dates: start: 20051117, end: 20080801
  2. PENICILLIN [Concomitant]
     Indication: TOOTH LOSS
     Dosage: UNKNOWN
     Route: 048
     Dates: start: 20080715

REACTIONS (2)
  - OROPHARYNGEAL CANCER STAGE UNSPECIFIED [None]
  - PATHOLOGICAL FRACTURE [None]
